FAERS Safety Report 16258661 (Version 1)
Quarter: 2019Q2

REPORT INFORMATION
  Report Type: Spontaneous
  Country: PL (occurrence: PL)
  Receive Date: 20190430
  Receipt Date: 20190430
  Transmission Date: 20190711
  Serious: Yes (Hospitalization)
  Sender: FDA-Public Use
  Company Number: PHHY2019PL095647

PATIENT
  Age: 64 Year
  Sex: Female
  Weight: 78 kg

DRUGS (1)
  1. DOCETAXEL. [Suspect]
     Active Substance: DOCETAXEL
     Indication: PROSTATE CANCER
     Dosage: 85 MG/M2, QD
     Route: 042
     Dates: start: 20160715

REACTIONS (2)
  - Leukopenia [Recovered/Resolved]
  - Granulocytopenia [Recovered/Resolved]

NARRATIVE: CASE EVENT DATE: 20160729
